FAERS Safety Report 6975219-6 (Version None)
Quarter: 2010Q3

REPORT INFORMATION
  Report Type: 
  Country: None (occurrence: None)
  Receive Date: 20100910
  Receipt Date: 20090217
  Transmission Date: 20110219
  Serious: No
  Sender: FDA-Public Use
  Company Number: US-WYE-H08251809

PATIENT
  Age: 83 Year
  Sex: Female

DRUGS (3)
  1. PRISTIQ [Suspect]
     Indication: DEPRESSION
     Route: 048
     Dates: start: 20090210
  2. DILTIAZEM [Concomitant]
  3. PREDNISONE [Concomitant]

REACTIONS (1)
  - DIZZINESS [None]
